FAERS Safety Report 6416139-5 (Version None)
Quarter: 2009Q4

REPORT INFORMATION
  Report Type: 
  Country: None (occurrence: None)
  Receive Date: 20091022
  Receipt Date: 20091009
  Transmission Date: 20100525
  Serious: Yes (Other)
  Sender: FDA-Public Use
  Company Number: 2009AL005947

PATIENT
  Sex: Female

DRUGS (2)
  1. FEVERALL [Suspect]
     Indication: MIGRAINE
     Dosage: 650 MG,
  2. SOLPADEINE PLUS [Concomitant]

REACTIONS (2)
  - DYSPNOEA [None]
  - HYPERHIDROSIS [None]
